FAERS Safety Report 15685777 (Version 2)
Quarter: 2019Q2

REPORT INFORMATION
  Report Type: Spontaneous
  Country: US (occurrence: US)
  Receive Date: 20181204
  Receipt Date: 20190401
  Transmission Date: 20190711
  Serious: Yes (Other)
  Sender: FDA-Public Use
  Company Number: US-SA-2018SA328538

PATIENT
  Age: 85 Year
  Sex: Female
  Weight: 78.01 kg

DRUGS (12)
  1. ALLOPURINOL. [Concomitant]
     Active Substance: ALLOPURINOL
  2. INSULIN [Concomitant]
     Active Substance: INSULIN NOS
     Indication: DIABETES MELLITUS
  3. PANTOPRAZOLE [Concomitant]
     Active Substance: PANTOPRAZOLE
  4. AMIODARONE [Concomitant]
     Active Substance: AMIODARONE
  5. HYDRALAZINE [Concomitant]
     Active Substance: HYDRALAZINE HYDROCHLORIDE
  6. FERROUS SULFATE. [Concomitant]
     Active Substance: FERROUS SULFATE
  7. FUROSEMIDE. [Concomitant]
     Active Substance: FUROSEMIDE
  8. RENVELA [Suspect]
     Active Substance: SEVELAMER CARBONATE
     Dosage: 2.4 G, QD
  9. METOPROLOL. [Concomitant]
     Active Substance: METOPROLOL
  10. ISOSORBIDE. [Concomitant]
     Active Substance: ISOSORBIDE
  11. NIFEDIPINE. [Concomitant]
     Active Substance: NIFEDIPINE
  12. RENVELA [Suspect]
     Active Substance: SEVELAMER CARBONATE
     Dosage: 2.4 G, QD
     Dates: start: 20180910

REACTIONS (8)
  - Duodenal obstruction [Unknown]
  - Decreased appetite [Unknown]
  - Nausea [Unknown]
  - Vomiting [Unknown]
  - Product size issue [Unknown]
  - Constipation [Unknown]
  - Hip fracture [Unknown]
  - Peritoneal dialysis [Unknown]

NARRATIVE: CASE EVENT DATE: 201808
